FAERS Safety Report 7654456-1 (Version None)
Quarter: 2011Q3

REPORT INFORMATION
  Report Type: 
  Country: None (occurrence: None)
  Receive Date: 20110803
  Receipt Date: 20110729
  Transmission Date: 20111222
  Serious: Yes (Other)
  Sender: FDA-Public Use
  Company Number: CA-ABBOTT-11P-028-0843115-00

PATIENT
  Sex: Female
  Weight: 50.394 kg

DRUGS (7)
  1. DIAMACRON [Concomitant]
     Indication: DIABETES MELLITUS
  2. HUMIRA [Suspect]
     Indication: CROHN'S DISEASE
     Route: 058
     Dates: start: 20080714
  3. HUMIRA [Suspect]
     Dosage: LOADING DOSE
     Route: 058
     Dates: start: 20110729, end: 20110729
  4. HUMIRA [Suspect]
     Dosage: LOADING DOSE
     Route: 058
     Dates: start: 20110715, end: 20110715
  5. PREDNISONE [Concomitant]
     Indication: GASTROINTESTINAL DISORDER
     Dosage: DAILY DOSE: 60MG
  6. ALBUTEROL [Concomitant]
     Indication: RESPIRATORY DISORDER
  7. METHOTREXATE [Concomitant]
     Indication: GASTROINTESTINAL DISORDER

REACTIONS (8)
  - MALAISE [None]
  - HAEMATOCHEZIA [None]
  - INTESTINAL PERFORATION [None]
  - ABDOMINAL DISTENSION [None]
  - ABDOMINAL TENDERNESS [None]
  - INTESTINAL OBSTRUCTION [None]
  - VOMITING [None]
  - MUCOUS STOOLS [None]
